FAERS Safety Report 18170896 (Version 2)
Quarter: 2020Q4

REPORT INFORMATION
  Report Type: Spontaneous
  Country: ES (occurrence: ES)
  Receive Date: 20200819
  Receipt Date: 20201013
  Transmission Date: 20210113
  Serious: Yes (Death)
  Sender: FDA-Public Use
  Company Number: ES-MYLANLABS-2020M1072557

PATIENT
  Age: 40 Year
  Sex: Female
  Weight: 60 kg

DRUGS (5)
  1. CLONIDINA                          /00171101/ [Suspect]
     Active Substance: CLONIDINE
     Indication: HYPERTENSIVE ENCEPHALOPATHY
     Dosage: 0.15 MILLIGRAM, Q8H
     Dates: start: 20200515, end: 20200602
  2. CEFTRIAXONA                        /00672201/ [Suspect]
     Active Substance: CEFTRIAXONE
     Indication: PRODUCT USED FOR UNKNOWN INDICATION
     Dosage: 1 GRAM, QD
     Route: 042
     Dates: start: 20200426, end: 20200429
  3. GABAPENTINA [Suspect]
     Active Substance: GABAPENTIN
     Indication: INTRACRANIAL PRESSURE INCREASED
     Dosage: UNK, 100MG A 300 MG CADA 24H
     Dates: start: 20200519, end: 20200602
  4. LINEZOLID. [Suspect]
     Active Substance: LINEZOLID
     Indication: PYREXIA
     Dosage: 600 MILLIGRAM, BID
     Route: 042
     Dates: start: 20200506, end: 20200513
  5. LINEZOLID. [Suspect]
     Active Substance: LINEZOLID
     Indication: URINARY TRACT INFECTION
     Dosage: UNK
     Dates: start: 20200524, end: 20200527

REACTIONS (1)
  - Toxic epidermal necrolysis [Fatal]

NARRATIVE: CASE EVENT DATE: 20200526
